FAERS Safety Report 13089379 (Version 1)
Quarter: 2017Q1

REPORT INFORMATION
  Report Type: Spontaneous
  Country: US (occurrence: US)
  Receive Date: 20170105
  Receipt Date: 20170105
  Transmission Date: 20170428
  Serious: No
  Sender: FDA-Public Use
  Company Number: US-PFIZER INC-2016604179

PATIENT
  Sex: Female

DRUGS (1)
  1. XELJANZ [Suspect]
     Active Substance: TOFACITINIB CITRATE
     Dosage: 5 MG, UNK

REACTIONS (7)
  - Rash [Unknown]
  - Fluid retention [Unknown]
  - Sinusitis [Unknown]
  - Pruritus [Unknown]
  - Blood pressure increased [Unknown]
  - Headache [Unknown]
  - Tooth extraction [Unknown]
